FAERS Safety Report 7374521-6 (Version None)
Quarter: 2011Q1

REPORT INFORMATION
  Report Type: 
  Country: None (occurrence: None)
  Receive Date: 20110325
  Receipt Date: 20100209
  Transmission Date: 20110831
  Serious: No
  Sender: FDA-Public Use
  Company Number: US-MYLANLABS-2010S1002129

PATIENT
  Sex: Male

DRUGS (8)
  1. ALBUTEROL [Concomitant]
     Indication: ASTHMA
     Route: 048
  2. ZOCOR [Concomitant]
     Indication: BLOOD CHOLESTEROL INCREASED
     Route: 048
  3. ALENDRONATE SODIUM [Concomitant]
     Indication: OSTEOPOROSIS
     Route: 048
  4. FENTANYL-100 [Suspect]
     Indication: NEUROPATHY PERIPHERAL
     Dosage: CHANGES PATCH Q 48 HOURS
     Route: 062
  5. ZANTAC [Concomitant]
     Indication: GASTROOESOPHAGEAL REFLUX DISEASE
     Route: 048
  6. FLOMAX /01280302/ [Concomitant]
     Indication: ASTHMA
     Route: 048
  7. CALCIUM [Concomitant]
     Indication: OSTEOPOROSIS
     Route: 048
  8. VALIUM [Concomitant]
     Indication: ANXIETY
     Route: 048

REACTIONS (4)
  - NEURALGIA [None]
  - COLD SWEAT [None]
  - DRUG EFFECT DECREASED [None]
  - DRUG WITHDRAWAL SYNDROME [None]
